FAERS Safety Report 25654658 (Version 1)
Quarter: 2025Q3

REPORT INFORMATION
  Report Type: Spontaneous
  Country: US (occurrence: US)
  Receive Date: 20250807
  Receipt Date: 20250807
  Transmission Date: 20251020
  Serious: Yes (Hospitalization, Other)
  Sender: AUROBINDO
  Company Number: US-AUROBINDO-AUR-APL-2025-039941

PATIENT
  Age: 94 Year
  Sex: Male

DRUGS (2)
  1. FUROSEMIDE [Suspect]
     Active Substance: FUROSEMIDE
     Indication: Respiratory distress
     Route: 065
  2. APIXABAN [Suspect]
     Active Substance: APIXABAN
     Indication: Suicide attempt
     Route: 048

REACTIONS (7)
  - Respiratory distress [Unknown]
  - Ecchymosis [Unknown]
  - International normalised ratio abnormal [Unknown]
  - Hypotension [Recovered/Resolved]
  - Haemoglobin decreased [Unknown]
  - Intentional overdose [Unknown]
  - Drug ineffective [Unknown]
